FAERS Safety Report 9813799 (Version 2)
Quarter: 2014Q2

REPORT INFORMATION
  Report Type: Spontaneous
  Country: BR (occurrence: BR)
  Receive Date: 20140113
  Receipt Date: 20140401
  Transmission Date: 20141212
  Serious: Yes (Hospitalization)
  Sender: FDA-Public Use
  Company Number: BR-B.I. PHARMACEUTICALS,INC./RIDGEFIELD-2014-BI-01345BR

PATIENT
  Age: 82 Year
  Sex: Female
  Weight: 82 kg

DRUGS (5)
  1. PRADAXA [Suspect]
     Indication: THROMBOSIS
     Dosage: 75 MG
     Route: 048
     Dates: start: 201311
  2. CARVEDILOL [Concomitant]
     Indication: HYPERTENSION
     Route: 048
  3. HYDROCHLOROTHIAZIDE [Concomitant]
     Indication: HYPERTENSION
     Route: 048
  4. GLIMEPIRIDE [Concomitant]
     Indication: DIABETES MELLITUS
     Route: 048
  5. OMEPRAZOL [Concomitant]
     Indication: GASTRITIS
     Route: 048

REACTIONS (2)
  - Infarction [Recovered/Resolved]
  - Cerebrovascular accident [Recovered/Resolved]
